FAERS Safety Report 5522412-5 (Version None)
Quarter: 2007Q4

REPORT INFORMATION
  Report Type: 
  Country: None (occurrence: None)
  Receive Date: 20071120
  Receipt Date: 20071107
  Transmission Date: 20080405
  Serious: Yes (Other)
  Sender: FDA-Public Use
  Company Number: US-ELI_LILLY_AND_COMPANY-US200711002064

PATIENT
  Age: 54 Year
  Sex: Female

DRUGS (5)
  1. BYETTA [Suspect]
     Dosage: 5 UG, 2/D
     Route: 058
     Dates: start: 20060101, end: 20060101
  2. BYETTA [Suspect]
     Dosage: 10 UG, 2/D
     Route: 058
     Dates: start: 20060101, end: 20071102
  3. GLUCOPHAGE [Concomitant]
     Dosage: UNK, UNKNOWN
  4. STARLIX [Concomitant]
     Dosage: UNK, UNKNOWN
  5. ACTOS [Concomitant]
     Dosage: UNK, UNKNOWN

REACTIONS (2)
  - BLOOD GLUCOSE INCREASED [None]
  - PANCREATITIS [None]
